FAERS Safety Report 4991716-7 (Version None)
Quarter: 2006Q2

REPORT INFORMATION
  Report Type: 
  Country: None (occurrence: None)
  Receive Date: 20060504
  Receipt Date: 20060426
  Transmission Date: 20061013
  Serious: Yes (Disabling)
  Sender: FDA-Public Use
  Company Number: FR-GLAXOSMITHKLINE-B0421896A

PATIENT
  Age: 66 Year
  Sex: Male

DRUGS (7)
  1. AVANDAMET [Suspect]
     Dosage: 2TAB TWICE PER DAY
     Route: 048
     Dates: start: 20060314, end: 20060319
  2. UN ALPHA [Concomitant]
     Dosage: 1MCG THREE TIMES PER DAY
     Route: 048
  3. LEVOTHYROX [Concomitant]
     Dosage: 225MCG PER DAY
     Route: 048
  4. TAHOR [Concomitant]
     Dosage: 10MG PER DAY
     Route: 048
  5. ZANIDIP [Concomitant]
     Indication: ESSENTIAL HYPERTENSION
     Dosage: 20MG PER DAY
     Route: 048
  6. COAPROVEL [Concomitant]
     Indication: ESSENTIAL HYPERTENSION
     Dosage: 1UNIT PER DAY
     Route: 048
  7. ALLOPURINOL [Concomitant]
     Dosage: 100MG PER DAY
     Route: 065

REACTIONS (5)
  - ABDOMINAL PAIN [None]
  - ASTHENIA [None]
  - HYPOGLYCAEMIA [None]
  - MYALGIA [None]
  - PALPITATIONS [None]
